FAERS Safety Report 6537923-3 (Version None)
Quarter: 2010Q1

REPORT INFORMATION
  Report Type: 
  Country: None (occurrence: None)
  Receive Date: 20100114
  Receipt Date: 20100105
  Transmission Date: 20100710
  Serious: Yes (Hospitalization)
  Sender: FDA-Public Use
  Company Number: JP-BRISTOL-MYERS SQUIBB COMPANY-14887327

PATIENT
  Age: 64 Year
  Sex: Female
  Weight: 51 kg

DRUGS (10)
  1. NONE [Suspect]
  2. DESYREL [Suspect]
     Indication: MAJOR DEPRESSION
     Dosage: 6OCT-19NOV(410 D):37.5MG 20NOV-26NOV(7 D):25MG 28NOV CONTI:37.5MG
     Route: 048
     Dates: start: 20081006
  3. ZOLOFT [Suspect]
     Indication: MAJOR DEPRESSION
     Dosage: TABS INTERRUPTED ON 26NOV2009,27NOV09 RESUMED ON 28NOV2009-28NOV09(25MG)THEN 50MG DAYS (687 DAYS)
     Route: 048
     Dates: start: 20080110
  4. MYSLEE [Suspect]
     Indication: INSOMNIA
     Dosage: TABS
     Route: 048
     Dates: start: 20091120, end: 20091127
  5. BENZALIN [Suspect]
     Indication: INSOMNIA
     Dosage: TABS;27DEC07-19NOV09(694D);28NOV09-UNK
     Route: 048
     Dates: start: 20071227
  6. DOGMATYL [Suspect]
     Indication: MAJOR DEPRESSION
     Dosage: TABS;19JUN-19NOV09(154D); 100MG FROM 20-26NOV2009(7D) 50MG FROM 28NOV2009
     Route: 048
     Dates: start: 20090619
  7. MEVALOTIN [Concomitant]
     Dates: start: 20071227
  8. TEPRENONE [Concomitant]
     Dosage: GRANULE, 10%
     Dates: start: 20080602
  9. DEKASOFT [Concomitant]
     Dosage: CAPS
     Dates: start: 20080616
  10. PURSENNIDE [Concomitant]

REACTIONS (5)
  - ANXIETY [None]
  - FEAR [None]
  - MALAISE [None]
  - RESTLESSNESS [None]
  - WITHDRAWAL SYNDROME [None]
